FAERS Safety Report 7242854-X (Version None)
Quarter: 2011Q1

REPORT INFORMATION
  Report Type: 
  Country: None (occurrence: None)
  Receive Date: 20110114
  Receipt Date: 20101230
  Transmission Date: 20110831
  Serious: Yes (Disabling, Other)
  Sender: FDA-Public Use
  Company Number: THQ2010A04087

PATIENT
  Age: 88 Year
  Sex: Female

DRUGS (7)
  1. AMILORIDE HYDROCHLORIDE [Concomitant]
  2. ELANTAN LA (ISOSORBIDE) [Concomitant]
  3. BUMETANIDE [Concomitant]
  4. ESCITALOPRAM [Concomitant]
  5. BEZAFIBRATE [Concomitant]
  6. LANSOPRAZOLE [Suspect]
     Indication: PROPHYLAXIS
     Dosage: 30 MG (30 MG, 1 IN 1 D), PER ORAL
     Route: 048
     Dates: start: 20101123, end: 20101128
  7. ASPIRIN [Concomitant]

REACTIONS (2)
  - HALLUCINATION, VISUAL [None]
  - DIPLOPIA [None]
